FAERS Safety Report 6234501-0 (Version None)
Quarter: 2009Q2

REPORT INFORMATION
  Report Type: 
  Country: None (occurrence: None)
  Receive Date: 20090618
  Receipt Date: 20081016
  Transmission Date: 20091009
  Serious: No
  Sender: FDA-Public Use
  Company Number: US-BRISTOL-MYERS SQUIBB COMPANY-14372627

PATIENT
  Age: 66 Year
  Sex: Male

DRUGS (8)
  1. SINEMET [Suspect]
     Indication: PARKINSON'S DISEASE
  2. HYZAAR [Concomitant]
  3. PLAVIX [Concomitant]
  4. TOPROL-XL [Concomitant]
  5. FOLIC ACID [Concomitant]
  6. ASPIRIN [Concomitant]
  7. LOPID [Concomitant]
  8. REQUIP [Concomitant]

REACTIONS (1)
  - FLUSHING [None]
